FAERS Safety Report 9182469 (Version 1)
Quarter: 2013Q1

REPORT INFORMATION
  Report Type: Spontaneous
  Country: US (occurrence: US)
  Receive Date: 20130322
  Receipt Date: 20130322
  Transmission Date: 20140127
  Serious: Yes (Hospitalization, Other)
  Sender: FDA-Public Use
  Company Number: US-BRISTOL-MYERS SQUIBB COMPANY-16763062

PATIENT
  Age: 52 Year
  Sex: Male

DRUGS (3)
  1. ERBITUX SOLN FOR INF [Suspect]
     Indication: HEAD AND NECK CANCER
     Dosage: 16 DROPS /MIN, 690 MG,1 DOSE
     Route: 042
     Dates: start: 20120618
  2. BENADRYL [Concomitant]
     Route: 042
  3. TYLENOL [Concomitant]
     Route: 048

REACTIONS (1)
  - Infusion related reaction [Recovered/Resolved]
